FAERS Safety Report 9291318 (Version 1)
Quarter: 2013Q2

REPORT INFORMATION
  Report Type: Spontaneous
  Country: FR (occurrence: None)
  Receive Date: 20130513
  Receipt Date: 20130513
  Transmission Date: 20140414
  Serious: Yes (Hospitalization)
  Sender: FDA-Public Use
  Company Number: 1707860

PATIENT
  Age: 61 Year
  Sex: Female

DRUGS (4)
  1. (CARBOPLATIN) [Suspect]
     Indication: BREAST CANCER
     Route: 041
     Dates: start: 20130326, end: 20130326
  2. CAELYX [Suspect]
     Indication: BREAST CANCER
     Route: 041
     Dates: start: 20130326, end: 20130326
  3. METHYLPREDNISOLONE [Concomitant]
  4. (KEYTRAIL) [Concomitant]

REACTIONS (6)
  - Feeling hot [None]
  - Erythema [None]
  - Pruritus [None]
  - Infusion site reaction [None]
  - Erythema [None]
  - Infusion related reaction [None]
